FAERS Safety Report 13349700 (Version 1)
Quarter: 2017Q1

REPORT INFORMATION
  Report Type: Spontaneous
  Country: FR (occurrence: FR)
  Receive Date: 20170320
  Receipt Date: 20170320
  Transmission Date: 20170429
  Serious: Yes (Other)
  Sender: FDA-Public Use
  Company Number: FR-PFIZER INC-2017119416

PATIENT
  Age: 70 Year
  Sex: Male

DRUGS (4)
  1. FLUOROURACIL. [Suspect]
     Active Substance: FLUOROURACIL
     Dosage: UNK
     Dates: start: 201701, end: 201702
  2. OXALIPLATIN. [Suspect]
     Active Substance: OXALIPLATIN
     Dosage: UNK
     Dates: start: 201701, end: 201702
  3. BEVACIZUMAB [Suspect]
     Active Substance: BEVACIZUMAB
     Dosage: UNK
     Dates: start: 201701, end: 201702
  4. FOLINIC ACID [Suspect]
     Active Substance: LEUCOVORIN
     Dosage: UNK
     Dates: start: 201701, end: 201702

REACTIONS (5)
  - Pyrexia [Not Recovered/Not Resolved]
  - Shock [Unknown]
  - Hypertension [Recovered/Resolved]
  - Chills [Unknown]
  - Vomiting [Unknown]

NARRATIVE: CASE EVENT DATE: 201701
